FAERS Safety Report 6114882-9 (Version None)
Quarter: 2009Q1

REPORT INFORMATION
  Report Type: 
  Country: None (occurrence: None)
  Receive Date: 20090313
  Receipt Date: 20090303
  Transmission Date: 20090719
  Serious: Yes (Hospitalization)
  Sender: FDA-Public Use
  Company Number: PHHY2009BE05740

PATIENT
  Sex: Male

DRUGS (6)
  1. GLEEVEC [Suspect]
     Indication: CHRONIC MYELOID LEUKAEMIA
     Dosage: 400 MG DAILY
     Route: 048
     Dates: start: 20010101, end: 20090101
  2. ACETYLSALICYLIC ACID [Concomitant]
     Indication: CORONARY ARTERY DISEASE
     Dosage: 100 MG DAILY
     Dates: start: 20060101, end: 20090101
  3. RANITIDINE [Concomitant]
     Indication: GASTRITIS
     Dosage: 150 MG, BID
     Dates: start: 20060101, end: 20090101
  4. SELOZOK [Concomitant]
     Indication: CORONARY ARTERY DISEASE
     Dosage: 100 MG DAILY
     Dates: start: 20060101, end: 20090101
  5. FENOFIBRATE [Concomitant]
     Indication: HYPERCHOLESTEROLAEMIA
     Dosage: 100 MG DAILY
     Dates: start: 20080201, end: 20090101
  6. LISINOPRIL [Concomitant]
     Indication: RENAL FAILURE
     Dosage: 100 MG DAILY
     Dates: start: 20071201, end: 20090101

REACTIONS (4)
  - COLITIS [None]
  - COLITIS ULCERATIVE [None]
  - COLOSTOMY [None]
  - ILEOSTOMY [None]
